FAERS Safety Report 13298420 (Version 1)
Quarter: 2017Q1

REPORT INFORMATION
  Report Type: Spontaneous
  Country: US (occurrence: US)
  Receive Date: 20170306
  Receipt Date: 20170306
  Transmission Date: 20170428
  Serious: Yes (Other)
  Sender: FDA-Public Use
  Company Number: None

PATIENT
  Age: 53 Year
  Sex: Female
  Weight: 66 kg

DRUGS (2)
  1. NEULASTA [Suspect]
     Active Substance: PEGFILGRASTIM
     Indication: PROPHYLAXIS
     Dosage: 6 MG / 0.6 ML ONCE SUBCUTANEOUS
     Route: 058
     Dates: start: 20170213
  2. NEULASTA [Suspect]
     Active Substance: PEGFILGRASTIM
     Indication: NEUTROPENIA
     Dosage: 6 MG / 0.6 ML ONCE SUBCUTANEOUS
     Route: 058
     Dates: start: 20170213

REACTIONS (1)
  - Device malfunction [None]

NARRATIVE: CASE EVENT DATE: 20170222
